FAERS Safety Report 4836498-4 (Version None)
Quarter: 2005Q4

REPORT INFORMATION
  Report Type: 
  Country: None (occurrence: None)
  Receive Date: 20051118
  Receipt Date: 20051109
  Transmission Date: 20060501
  Serious: Yes (Life-Threatening, Hospitalization, Other)
  Sender: FDA-Public Use
  Company Number: 2005153548

PATIENT
  Age: 47 Year
  Sex: Male

DRUGS (2)
  1. BEXTRA [Suspect]
     Indication: HEADACHE
     Dosage: 20 MG (20 MG, 1 IN 1 D), ORAL
     Route: 048
     Dates: start: 20050110, end: 20050101
  2. ALL OTHER THERAPEUTIC PRODUCTS (ALL OTHER THERAPEUTIC PRODUCTS) [Concomitant]

REACTIONS (3)
  - CEREBRAL INFARCTION [None]
  - DEPRESSION [None]
  - LOSS OF CONSCIOUSNESS [None]
